FAERS Safety Report 12333820 (Version 1)
Quarter: 2016Q2

REPORT INFORMATION
  Report Type: Spontaneous
  Country: US (occurrence: US)
  Receive Date: 20160504
  Receipt Date: 20160504
  Transmission Date: 20160815
  Serious: No
  Sender: FDA-Public Use
  Company Number: US-ROCHE-1657062

PATIENT
  Sex: Male
  Weight: 83.54 kg

DRUGS (1)
  1. ESBRIET [Suspect]
     Active Substance: PIRFENIDONE
     Indication: IDIOPATHIC PULMONARY FIBROSIS
     Dosage: 267MG, TOTAL DOSE: 2403 MG DAILY
     Route: 048
     Dates: start: 20150522

REACTIONS (1)
  - Liver disorder [Recovered/Resolved]
